FAERS Safety Report 6305675-8 (Version None)
Quarter: 2009Q3

REPORT INFORMATION
  Report Type: 
  Country: None (occurrence: None)
  Receive Date: 20090807
  Receipt Date: 20090805
  Transmission Date: 20100115
  Serious: Yes (Hospitalization)
  Sender: FDA-Public Use
  Company Number: SP02505

PATIENT
  Age: 14 Year
  Sex: Male

DRUGS (2)
  1. OSMOPREP [Suspect]
     Indication: BOWEL PREPARATION
     Dosage: ORAL
     Route: 048
     Dates: start: 20090716, end: 20090716
  2. PREVACID [Concomitant]

REACTIONS (8)
  - APPARENT DEATH [None]
  - BACTERIAL INFECTION [None]
  - CALCIUM DEFICIENCY [None]
  - HEART RATE INCREASED [None]
  - MOVEMENT DISORDER [None]
  - MUSCLE DISORDER [None]
  - MUSCLE RIGIDITY [None]
  - MYALGIA [None]
